FAERS Safety Report 6992597-2 (Version None)
Quarter: 2010Q3

REPORT INFORMATION
  Report Type: 
  Country: None (occurrence: None)
  Receive Date: 20100917
  Receipt Date: 20100908
  Transmission Date: 20110219
  Serious: Yes (Other)
  Sender: FDA-Public Use
  Company Number: US-ROCHE-726956

PATIENT
  Sex: Female
  Weight: 68 kg

DRUGS (7)
  1. BONIVA [Suspect]
     Indication: OSTEOPOROSIS
     Dosage: DURATION ON USE: A LONG TIME (SEVERAL YEARS)
     Route: 048
  2. ATENOLOL [Concomitant]
  3. LEVOTHYROXINE [Concomitant]
  4. PREVACID [Concomitant]
  5. GINKGO BILOBA [Concomitant]
  6. ASPIRIN [Concomitant]
  7. FOLIC ACID [Concomitant]

REACTIONS (7)
  - FALL [None]
  - MYALGIA [None]
  - NEUROPATHY PERIPHERAL [None]
  - OROPHARYNGEAL BLISTERING [None]
  - PAIN IN EXTREMITY [None]
  - PSORIASIS [None]
  - WRIST FRACTURE [None]
